FAERS Safety Report 19931868 (Version 2)
Quarter: 2021Q4

REPORT INFORMATION
  Report Type: Report from Study
  Country: None (occurrence: US)
  Receive Date: 20211007
  Receipt Date: 20211009
  Transmission Date: 20220304
  Serious: Yes (Death)
  Sender: FDA-Public Use
  Company Number: US-ABBVIE-21K-163-4111257-00

PATIENT
  Age: 70 Year
  Sex: Male

DRUGS (2)
  1. VENCLEXTA [Suspect]
     Active Substance: VENETOCLAX
     Indication: Plasma cell myeloma
     Route: 048
     Dates: start: 20200520
  2. CARFILZOMIB [Concomitant]
     Active Substance: CARFILZOMIB
     Indication: Product used for unknown indication

REACTIONS (2)
  - Death [Fatal]
  - Off label use [Unknown]

NARRATIVE: CASE EVENT DATE: 20210922
